FAERS Safety Report 4434630-8 (Version None)
Quarter: 2004Q3

REPORT INFORMATION
  Report Type: 
  Country: None (occurrence: None)
  Receive Date: 20040824
  Receipt Date: 20040811
  Transmission Date: 20050211
  Serious: Yes (Hospitalization, Other)
  Sender: FDA-Public Use
  Company Number: HQWYE212312AUG04

PATIENT
  Age: 37 Year
  Sex: Male

DRUGS (2)
  1. EFFEXOR [Suspect]
     Dates: end: 20010117
  2. VASOTEC [Suspect]
     Dates: end: 20010117

REACTIONS (10)
  - ANXIETY [None]
  - BLOOD GLUCOSE INCREASED [None]
  - BLOOD URIC ACID INCREASED [None]
  - DIZZINESS [None]
  - DRUG INTERACTION [None]
  - DYSGEUSIA [None]
  - FATIGUE [None]
  - FEELING COLD [None]
  - HOT FLUSH [None]
  - HYPERTENSION [None]
